FAERS Safety Report 8371458-0 (Version None)
Quarter: 2012Q2

REPORT INFORMATION
  Report Type: 
  Country: None (occurrence: None)
  Receive Date: 20120518
  Receipt Date: 20120509
  Transmission Date: 20120825
  Serious: Yes (Hospitalization, Other)
  Sender: FDA-Public Use
  Company Number: US-VERTEX PHARMACEUTICALS INC.-AE-2012-006777

PATIENT
  Sex: Female

DRUGS (3)
  1. PEGASYS [Concomitant]
     Indication: HEPATITIS C
     Dates: start: 20120210, end: 20120330
  2. INCIVEK [Suspect]
     Indication: HEPATITIS C
     Route: 048
     Dates: start: 20120210, end: 20120330
  3. RIBAVIRIN [Concomitant]
     Indication: HEPATITIS C
     Dates: start: 20120210, end: 20120330

REACTIONS (6)
  - FATIGUE [None]
  - DRUG INEFFECTIVE [None]
  - SYNCOPE [None]
  - DIZZINESS [None]
  - ANAEMIA [None]
  - RENAL FAILURE [None]
